FAERS Safety Report 16975969 (Version 1)
Quarter: 2019Q4

REPORT INFORMATION
  Report Type: Spontaneous
  Country: US (occurrence: US)
  Receive Date: 20190913
  Receipt Date: 20190913
  Transmission Date: 20200122
  Serious: No
  Sender: FDA-Public Use
  Company Number: None

PATIENT
  Age: 57 Year
  Sex: Female
  Weight: 53.52 kg

DRUGS (1)
  1. IC BIMATOPROST 0.03% EYELASH SOLN [Suspect]
     Active Substance: BIMATOPROST
     Indication: MADAROSIS
     Dosage: ?          QUANTITY:0.03 % PERCENT;  ONE DROP?
     Dates: start: 20190802, end: 20190815

REACTIONS (1)
  - Headache [None]

NARRATIVE: CASE EVENT DATE: 20190802
